FAERS Safety Report 16851801 (Version 1)
Quarter: 2019Q3

REPORT INFORMATION
  Report Type: Spontaneous
  Country: ES (occurrence: ES)
  Receive Date: 20190925
  Receipt Date: 20190925
  Transmission Date: 20191005
  Serious: Yes (Hospitalization)
  Sender: FDA-Public Use
  Company Number: ES-ASTRAZENECA-2019SF32396

PATIENT
  Age: 65 Year
  Sex: Male

DRUGS (5)
  1. AMOXICILINA + ???CIDO CLAVUL???NICO [Concomitant]
     Dosage: 1.0G ONCE/SINGLE ADMINISTRATION
     Route: 042
     Dates: start: 20190621, end: 20190621
  2. NOLOTIL [Concomitant]
     Route: 042
     Dates: start: 20190621, end: 20190622
  3. OMEPRAZOL (2141A) [Suspect]
     Active Substance: OMEPRAZOLE
     Route: 048
     Dates: start: 20190621, end: 20190624
  4. CARDYL [Concomitant]
     Active Substance: ATORVASTATIN CALCIUM
     Dosage: 20 MG COMPRIMIDOS RECUBIERTOS CON PELICULA, 28 COMPRIMIDOS
     Route: 048
  5. ONDANSETRON (2575A) [Concomitant]
     Active Substance: ONDANSETRON
     Route: 042
     Dates: start: 20190621, end: 20190624

REACTIONS (2)
  - Acute kidney injury [Recovered/Resolved]
  - Tubulointerstitial nephritis [Recovered/Resolved]

NARRATIVE: CASE EVENT DATE: 20190623
